FAERS Safety Report 4332155-1 (Version None)
Quarter: 2004Q2

REPORT INFORMATION
  Report Type: 
  Country: None (occurrence: None)
  Receive Date: 20040401
  Receipt Date: 20040401
  Transmission Date: 20050107
  Serious: No
  Sender: FDA-Public Use
  Company Number: None

PATIENT
  Sex: Female
  Weight: 102 kg

DRUGS (1)
  1. WARFARIN SODIUM [Suspect]
     Indication: ATRIAL FIBRILLATION
     Dosage: 3 MG DAILY ORAL
     Route: 048
     Dates: start: 20030802, end: 20040310

REACTIONS (1)
  - INTERNATIONAL NORMALISED RATIO INCREASED [None]
